FAERS Safety Report 12691418 (Version 1)
Quarter: 2016Q3

REPORT INFORMATION
  Report Type: Spontaneous
  Country: CA (occurrence: CA)
  Receive Date: 20160826
  Receipt Date: 20160826
  Transmission Date: 20161109
  Serious: Yes (Hospitalization, Other)
  Sender: FDA-Public Use
  Company Number: CA-TEVA-685912USA

PATIENT
  Age: 57 Year
  Sex: Male

DRUGS (12)
  1. AMIKACIN [Suspect]
     Active Substance: AMIKACIN
     Indication: MYCOBACTERIAL INFECTION
     Route: 042
     Dates: start: 20140707
  2. ISONIAZID. [Concomitant]
     Active Substance: ISONIAZID
     Indication: TUBERCULOSIS
  3. ETHAMBUTOL [Concomitant]
     Active Substance: ETHAMBUTOL HYDROCHLORIDE
     Indication: TUBERCULOSIS
  4. CLARITHROMYCIN. [Suspect]
     Active Substance: CLARITHROMYCIN
     Indication: MYCOBACTERIAL INFECTION
     Route: 048
     Dates: start: 20140717
  5. RIFAMPIN. [Concomitant]
     Active Substance: RIFAMPIN
     Indication: TUBERCULOSIS
  6. WARFARIN [Interacting]
     Active Substance: WARFARIN
     Indication: PERIPHERAL VASCULAR DISORDER
  7. TAZOBACTAM [Concomitant]
     Active Substance: TAZOBACTAM
     Indication: ABSCESS NECK
     Route: 042
     Dates: end: 20140609
  8. VANCOMYCIN [Concomitant]
     Active Substance: VANCOMYCIN
     Route: 042
     Dates: end: 20140610
  9. PYRAZINAMIDE. [Concomitant]
     Active Substance: PYRAZINAMIDE
     Indication: TUBERCULOSIS
  10. PENICILLIN [Concomitant]
     Active Substance: PENICILLIN
     Route: 048
  11. IMIPENEM [Suspect]
     Active Substance: IMIPENEM
     Indication: MYCOBACTERIAL INFECTION
     Route: 042
     Dates: start: 20140707
  12. MEROPENEM. [Concomitant]
     Active Substance: MEROPENEM
     Indication: ABSCESS NECK
     Route: 042

REACTIONS (4)
  - Drug interaction [Recovered/Resolved]
  - Gastrointestinal haemorrhage [Recovered/Resolved]
  - International normalised ratio increased [Recovered/Resolved]
  - Ototoxicity [Recovering/Resolving]

NARRATIVE: CASE EVENT DATE: 20140727
